FAERS Safety Report 10575208 (Version 1)
Quarter: 2014Q4

REPORT INFORMATION
  Report Type: Spontaneous
  Country: BE (occurrence: BE)
  Receive Date: 20141111
  Receipt Date: 20141111
  Transmission Date: 20150529
  Serious: Yes (Hospitalization)
  Sender: FDA-Public Use
  Company Number: BE-ROCHE-1487319

PATIENT
  Age: 10 Year
  Sex: Male
  Weight: 25.6 kg

DRUGS (4)
  1. ROCEPHIN [Suspect]
     Active Substance: CEFTRIAXONE SODIUM
     Indication: MENINGITIS BACTERIAL
     Route: 042
     Dates: start: 20140910, end: 20140920
  2. SALBUTAMOL [Concomitant]
     Active Substance: ALBUTEROL
  3. BUDESONID [Concomitant]
     Active Substance: BUDESONIDE
  4. FORMOTEROL [Concomitant]
     Active Substance: FORMOTEROL

REACTIONS (1)
  - Haematuria [Recovered/Resolved]

NARRATIVE: CASE EVENT DATE: 20140919
